FAERS Safety Report 7346051-9 (Version None)
Quarter: 2011Q1

REPORT INFORMATION
  Report Type: 
  Country: None (occurrence: None)
  Receive Date: 20110311
  Receipt Date: 20110302
  Transmission Date: 20110831
  Serious: No
  Sender: FDA-Public Use
  Company Number: US-BIOGENIDEC-2011BI008378

PATIENT
  Sex: Female

DRUGS (5)
  1. AVONEX [Suspect]
     Indication: MULTIPLE SCLEROSIS
     Route: 030
     Dates: start: 20100610, end: 20100601
  2. AVONEX [Suspect]
     Route: 030
     Dates: start: 20041006
  3. AVONEX [Suspect]
     Route: 030
     Dates: start: 20090321, end: 20100401
  4. AVONEX [Suspect]
     Route: 030
     Dates: end: 20070905
  5. AVONEX [Suspect]
     Route: 030
     Dates: start: 20021115, end: 20031103

REACTIONS (2)
  - CEREBRAL ATROPHY [None]
  - MULTIPLE SCLEROSIS RELAPSE [None]
